FAERS Safety Report 7241891-9 (Version None)
Quarter: 2011Q1

REPORT INFORMATION
  Report Type: 
  Country: None (occurrence: None)
  Receive Date: 20110124
  Receipt Date: 20110114
  Transmission Date: 20110831
  Serious: Yes (Hospitalization, Other)
  Sender: FDA-Public Use
  Company Number: US-ASTRAZENECA-2011SE02553

PATIENT
  Age: 53 Year
  Sex: Female
  Weight: 95.3 kg

DRUGS (18)
  1. BENZTROPIN [Concomitant]
     Indication: BIPOLAR DISORDER
     Route: 048
  2. LEVOTHYROXINE [Concomitant]
     Indication: THYROID DISORDER
     Route: 048
  3. SEROQUEL [Suspect]
     Route: 048
  4. SEROQUEL [Suspect]
     Route: 048
  5. SEROQUEL [Suspect]
     Route: 048
  6. NOVOLOG [Concomitant]
     Indication: DIABETES MELLITUS
     Route: 058
  7. CARBAMAZEPINE [Concomitant]
     Indication: BIPOLAR DISORDER
     Route: 048
  8. HALOPERIDOL [Concomitant]
     Indication: BIPOLAR DISORDER
     Route: 048
  9. SEROQUEL [Suspect]
     Indication: BIPOLAR DISORDER
     Route: 048
  10. TEMAZEPAM [Concomitant]
     Indication: BIPOLAR DISORDER
     Route: 048
  11. CLONAZEPAM [Concomitant]
     Indication: BIPOLAR DISORDER
     Route: 048
  12. GLIMIPERIDE [Concomitant]
     Indication: DIABETES MELLITUS
  13. METFORMIN HCL [Concomitant]
     Indication: DIABETES MELLITUS
  14. SEROQUEL [Suspect]
     Route: 048
  15. GEODON [Concomitant]
     Indication: BIPOLAR DISORDER
     Route: 048
  16. LAMICTAL [Concomitant]
     Indication: BIPOLAR DISORDER
     Route: 048
  17. GEODON [Concomitant]
     Route: 048
  18. LANTUS [Concomitant]
     Indication: DIABETES MELLITUS
     Route: 048

REACTIONS (10)
  - ANXIETY [None]
  - NEPHROPATHY [None]
  - SUICIDE ATTEMPT [None]
  - BIPOLAR I DISORDER [None]
  - HYPERTENSION [None]
  - MANIA [None]
  - EATING DISORDER [None]
  - AGITATION [None]
  - INSOMNIA [None]
  - DRUG DOSE OMISSION [None]
